FAERS Safety Report 8974567 (Version 1)
Quarter: 2012Q4

REPORT INFORMATION
  Report Type: 
  Country: US (occurrence: US)
  Receive Date: 20121220
  Receipt Date: 20121220
  Transmission Date: 20130627
  Serious: Yes (Hospitalization)
  Sender: FDA-Public Use
  Company Number: US-VIROPHARMA INCORPORATED-20121210CINRY3733

PATIENT
  Age: 0 None
  Sex: Male
  Weight: 1.54 kg

DRUGS (2)
  1. CINRYZE (C1 ESTERASE INHIBITOR (HUMAN)) [Suspect]
     Indication: HEREDITARY ANGIOEDEMA
     Route: 064
     Dates: start: 201205, end: 201209
  2. CINRYZE (C1 ESTERASE INHIBITOR (HUMAN)) [Suspect]
     Route: 064
     Dates: start: 201209, end: 20121209

REACTIONS (3)
  - Premature baby [Recovered/Resolved]
  - Low birth weight baby [Not Recovered/Not Resolved]
  - Foetal exposure during pregnancy [Recovered/Resolved]
